FAERS Safety Report 6987447-4 (Version None)
Quarter: 2010Q3

REPORT INFORMATION
  Report Type: 
  Country: None (occurrence: None)
  Receive Date: 20100916
  Receipt Date: 20100906
  Transmission Date: 20110219
  Serious: No
  Sender: FDA-Public Use
  Company Number: PHHY2010JP58053

PATIENT
  Sex: Male

DRUGS (4)
  1. VOLTAREN [Suspect]
     Indication: BACK PAIN
     Dosage: UNK
     Route: 054
  2. LOXONIN [Concomitant]
     Indication: BACK PAIN
  3. MYONAL [Concomitant]
     Indication: BACK PAIN
  4. ULCERLMIN [Concomitant]

REACTIONS (1)
  - RECTAL HAEMORRHAGE [None]
